FAERS Safety Report 5464787-1 (Version None)
Quarter: 2007Q3

REPORT INFORMATION
  Report Type: 
  Country: None (occurrence: None)
  Receive Date: 20070820
  Receipt Date: 20070718
  Transmission Date: 20080115
  Serious: No
  Sender: FDA-Public Use
  Company Number: TPA2007A01539

PATIENT
  Age: 75 Year
  Sex: Female
  Weight: 76.6579 kg

DRUGS (11)
  1. ROZEREM [Suspect]
     Indication: INSOMNIA
     Dosage: 8 MG, QHS, PER ORAL
     Route: 048
     Dates: start: 20070701
  2. ZOLOFT [Concomitant]
  3. ATIVAN [Concomitant]
  4. LOPRESSOR [Concomitant]
  5. NORVASC [Concomitant]
  6. MAXZIDE [Concomitant]
  7. SYNTHROID [Concomitant]
  8. ASPIRIN [Concomitant]
  9. MOBIC [Concomitant]
  10. LIBRAX (CHLORDIAZEPOXIDE, CLIDINIUM BROMIDE) [Concomitant]
  11. LIPITOR [Concomitant]

REACTIONS (2)
  - INITIAL INSOMNIA [None]
  - MIDDLE INSOMNIA [None]
